FAERS Safety Report 25701257 (Version 1)
Quarter: 2025Q3

REPORT INFORMATION
  Report Type: Spontaneous
  Country: EU (occurrence: EU)
  Receive Date: 20250819
  Receipt Date: 20250819
  Transmission Date: 20251021
  Serious: Yes (Other)
  Sender: VERTEX
  Company Number: None

PATIENT
  Age: 47 Year
  Sex: Male
  Weight: 62 kg

DRUGS (2)
  1. ELEXACAFTOR\IVACAFTOR\TEZACAFTOR [Suspect]
     Active Substance: ELEXACAFTOR\IVACAFTOR\TEZACAFTOR
     Indication: Cystic fibrosis
     Route: 048
  2. KALYDECO [Suspect]
     Active Substance: IVACAFTOR
     Indication: Cystic fibrosis
     Dosage: 1 TAB IN A DAY
     Route: 048
     Dates: start: 20240120

REACTIONS (4)
  - Pancreatic carcinoma [Not Recovered/Not Resolved]
  - Dry eye [Recovering/Resolving]
  - Insomnia [Recovering/Resolving]
  - Mood swings [Recovering/Resolving]

NARRATIVE: CASE EVENT DATE: 20240120
